FAERS Safety Report 17275271 (Version 1)
Quarter: 2020Q1

REPORT INFORMATION
  Report Type: Spontaneous
  Country: US (occurrence: US)
  Receive Date: 20200116
  Receipt Date: 20200116
  Transmission Date: 20200409
  Serious: Yes (Hospitalization, Other)
  Sender: FDA-Public Use
  Company Number: US-AUROBINDO-AUR-APL-2020-002512

PATIENT
  Age: 59 Year
  Sex: Female

DRUGS (2)
  1. DIVALPROEX [Suspect]
     Active Substance: DIVALPROEX SODIUM
     Indication: CREUTZFELDT-JAKOB DISEASE
     Dosage: UNK
     Route: 065
  2. PHENYTOIN. [Suspect]
     Active Substance: PHENYTOIN
     Indication: CREUTZFELDT-JAKOB DISEASE
     Route: 042

REACTIONS (2)
  - Drug ineffective [Unknown]
  - Hyperammonaemia [Unknown]
